FAERS Safety Report 5520527-9 (Version None)
Quarter: 2007Q4

REPORT INFORMATION
  Report Type: 
  Country: None (occurrence: None)
  Receive Date: 20071119
  Receipt Date: 20071109
  Transmission Date: 20080405
  Serious: No
  Sender: FDA-Public Use
  Company Number: GB-BAXTER-2007BH008813

PATIENT
  Age: 30 Year
  Sex: Female
  Weight: 72 kg

DRUGS (8)
  1. GENTAMICIN [Suspect]
     Indication: DRUG USE FOR UNKNOWN INDICATION
     Dosage: DOSE UNIT:UNKNOWN
     Route: 042
  2. METRONIDAZOLE [Suspect]
     Indication: DRUG USE FOR UNKNOWN INDICATION
     Dosage: DOSE UNIT:UNKNOWN
     Route: 042
  3. CHLORPHENIRAMINE TAB [Suspect]
     Indication: PRURITUS
     Dosage: DOSE UNIT:UNKNOWN
     Route: 042
  4. MORPHINE [Suspect]
     Indication: PAIN
     Dosage: DOSE UNIT:UNKNOWN
     Route: 048
  5. PARACETAMOL [Suspect]
     Indication: PAIN
     Dosage: DOSE UNIT:UNKNOWN
     Route: 065
  6. SODIUM LACTATE [Concomitant]
     Indication: DRUG USE FOR UNKNOWN INDICATION
     Route: 042
  7. CYCLOSPORINE [Concomitant]
     Indication: PSORIASIS
     Dosage: DOSE UNIT:UNKNOWN
     Route: 048
  8. DEXAMETHASONE [Concomitant]
     Indication: MATERNAL THERAPY TO ENHANCE FOETAL LUNG MATURITY
     Dosage: DOSE UNIT:UNKNOWN
     Route: 065

REACTIONS (10)
  - CALCIUM IONISED INCREASED [None]
  - FACE OEDEMA [None]
  - GENERAL PHYSICAL HEALTH DETERIORATION [None]
  - GENERALISED OEDEMA [None]
  - HYPERALBUMINAEMIA [None]
  - HYPOPROTEINAEMIA [None]
  - PREMATURE LABOUR [None]
  - PSORIASIS [None]
  - PYREXIA [None]
  - SOMNOLENCE [None]
